FAERS Safety Report 16323554 (Version 1)
Quarter: 2019Q2

REPORT INFORMATION
  Report Type: Report from Study
  Country: IL (occurrence: IL)
  Receive Date: 20190517
  Receipt Date: 20190517
  Transmission Date: 20190711
  Serious: Yes (Death, Other)
  Sender: FDA-Public Use
  Company Number: IL-ROCHE-2316568

PATIENT

DRUGS (1)
  1. ALTEPLASE. [Suspect]
     Active Substance: ALTEPLASE
     Indication: MYOCARDIAL INFARCTION
     Dosage: WAS GIVEN DURING A 6 HOUR INFUSION THAT CONSISTGD OF A 10 MG BOLUS FOLLOWED BY A CONTINUOUS INFUSION
     Route: 042

REACTIONS (3)
  - Cardiogenic shock [Unknown]
  - Aortic aneurysm rupture [Fatal]
  - Sepsis [Fatal]
